FAERS Safety Report 9918192 (Version 1)
Quarter: 2014Q1

REPORT INFORMATION
  Report Type: Spontaneous
  Country: IT (occurrence: IT)
  Receive Date: 20140223
  Receipt Date: 20140223
  Transmission Date: 20141002
  Serious: Yes (Other)
  Sender: FDA-Public Use
  Company Number: IT-MYLANLABS-2014S1003110

PATIENT
  Age: 74 Year
  Sex: Female

DRUGS (5)
  1. ACICLOVIR [Suspect]
     Indication: HERPES ZOSTER
     Dosage: 2400 MG DAILY
     Route: 048
     Dates: start: 20131014, end: 20131015
  2. LYRICA [Suspect]
     Indication: HERPES ZOSTER
     Dosage: 75 MG DAILY
     Route: 048
     Dates: start: 20131014, end: 20131015
  3. CYANOCOBALAMIN [Concomitant]
     Indication: HERPES ZOSTER
  4. TRIATEC [Concomitant]
     Indication: PRODUCT USED FOR UNKNOWN INDICATION
  5. CARDIOASPIRIN [Concomitant]
     Indication: PRODUCT USED FOR UNKNOWN INDICATION

REACTIONS (4)
  - Confusional state [Recovering/Resolving]
  - Dizziness [Recovering/Resolving]
  - Balance disorder [Recovering/Resolving]
  - Blood pressure increased [Recovering/Resolving]
